FAERS Safety Report 7055150-0 (Version None)
Quarter: 2010Q4

REPORT INFORMATION
  Report Type: 
  Country: None (occurrence: None)
  Receive Date: 20101021
  Receipt Date: 20101007
  Transmission Date: 20110411
  Serious: Yes (Hospitalization)
  Sender: FDA-Public Use
  Company Number: PHHY2010MX67288

PATIENT
  Sex: Female

DRUGS (1)
  1. DIOVAN HCT [Suspect]
     Indication: HYPERTENSION
     Dosage: ONE TABLET (160/UNKNOWN MG) PER DAY

REACTIONS (3)
  - DIZZINESS [None]
  - GALLBLADDER PAIN [None]
  - RENAL PAIN [None]
